FAERS Safety Report 21297448 (Version 1)
Quarter: 2022Q3

REPORT INFORMATION
  Report Type: Spontaneous
  Country: US (occurrence: US)
  Receive Date: 20220906
  Receipt Date: 20220906
  Transmission Date: 20221026
  Serious: No
  Sender: FDA-Public Use
  Company Number: US-PFIZER INC-202201117576

PATIENT
  Age: 81 Year
  Sex: Female

DRUGS (1)
  1. PAXLOVID [Suspect]
     Active Substance: NIRMATRELVIR\RITONAVIR
     Indication: COVID-19 treatment
     Dosage: 4 DF, 2X/DAY(3 PINK AND 1 WHITE TWICE A DAY)

REACTIONS (4)
  - Illness [Unknown]
  - Incorrect dose administered [Unknown]
  - Product dispensing error [Unknown]
  - Product label issue [Unknown]
